FAERS Safety Report 6114191-8 (Version None)
Quarter: 2009Q1

REPORT INFORMATION
  Report Type: 
  Country: None (occurrence: None)
  Receive Date: 20090312
  Receipt Date: 20080604
  Transmission Date: 20090719
  Serious: No
  Sender: FDA-Public Use
  Company Number: US-ABBOTT-08P-163-0454953-00

PATIENT
  Age: 82 Year
  Sex: Female

DRUGS (6)
  1. DEPAKOTE [Suspect]
     Indication: CONVULSION
     Route: 048
     Dates: start: 20080101, end: 20080201
  2. DEPAKOTE [Suspect]
     Route: 048
     Dates: start: 20080201
  3. DEPAKOTE ER [Suspect]
     Indication: CONVULSION
     Dates: start: 20080201
  4. ZOLOFT [Interacting]
     Indication: DEPRESSION
     Route: 048
     Dates: start: 20080601, end: 20080604
  5. ZOLOFT [Interacting]
     Route: 048
  6. RANITIDINE [Concomitant]
     Indication: GASTROOESOPHAGEAL REFLUX DISEASE
     Route: 048

REACTIONS (1)
  - CONVULSION [None]
